FAERS Safety Report 16033843 (Version 1)
Quarter: 2019Q1

REPORT INFORMATION
  Report Type: Report from Study
  Country: None (occurrence: US)
  Receive Date: 20190305
  Receipt Date: 20190305
  Transmission Date: 20190418
  Serious: Yes (Other)
  Sender: FDA-Public Use
  Company Number: US-ABBVIE-19K-163-2686231-00

PATIENT
  Age: 61 Year
  Sex: Male
  Weight: 69.01 kg

DRUGS (7)
  1. HUMIRA [Suspect]
     Active Substance: ADALIMUMAB
     Route: 058
     Dates: start: 201901
  2. BEE POLLEN [Concomitant]
     Active Substance: BEE POLLEN
     Indication: SUPPLEMENTATION THERAPY
  3. MORINGA [Concomitant]
     Indication: SUPPLEMENTATION THERAPY
  4. GINKGO BILOBA [Concomitant]
     Active Substance: GINKGO
     Indication: SUPPLEMENTATION THERAPY
  5. HUMIRA [Suspect]
     Active Substance: ADALIMUMAB
     Indication: RHEUMATOID ARTHRITIS
     Route: 058
     Dates: start: 2018, end: 201901
  6. LISINOPRIL. [Concomitant]
     Active Substance: LISINOPRIL
     Indication: HYPERTENSION
  7. HYDROLYZED COLLAGEN [Concomitant]
     Indication: SUPPLEMENTATION THERAPY

REACTIONS (4)
  - Nasal septum deviation [Unknown]
  - Dyspnoea [Not Recovered/Not Resolved]
  - Ocular hyperaemia [Recovering/Resolving]
  - Nasal oedema [Not Recovered/Not Resolved]

NARRATIVE: CASE EVENT DATE: 2018
